FAERS Safety Report 12113642 (Version 7)
Quarter: 2020Q2

REPORT INFORMATION
  Report Type: Report from Study
  Country: IT (occurrence: IT)
  Receive Date: 20160225
  Receipt Date: 20200628
  Transmission Date: 20200713
  Serious: Yes (Hospitalization, Other)
  Sender: FDA-Public Use
  Company Number: PHHY2016IT017849

PATIENT
  Age: 41 Year
  Sex: Female
  Weight: 60 kg

DRUGS (2)
  1. GILENYA [Suspect]
     Active Substance: FINGOLIMOD HYDROCHLORIDE
     Dosage: 0.5 MG, QD
     Route: 048
     Dates: start: 20150218, end: 20150428
  2. GILENYA [Suspect]
     Active Substance: FINGOLIMOD HYDROCHLORIDE
     Indication: RELAPSING-REMITTING MULTIPLE SCLEROSIS
     Dosage: 0.5 MG, QD
     Route: 048
     Dates: start: 20121004, end: 201502

REACTIONS (13)
  - Eosinophil count decreased [Recovered/Resolved]
  - Gestational diabetes [Recovered/Resolved]
  - Delivery [Unknown]
  - Anxiety [Recovered/Resolved]
  - Cough [Recovered/Resolved]
  - Lymphocyte count decreased [Not Recovered/Not Resolved]
  - Fall [Unknown]
  - Blood bilirubin increased [Recovered/Resolved]
  - Maternal exposure during pregnancy [Unknown]
  - White blood cell count decreased [Recovered/Resolved]
  - Nasopharyngitis [Recovered/Resolved]
  - Muscle spasticity [Not Recovered/Not Resolved]
  - Headache [Recovered/Resolved]

NARRATIVE: CASE EVENT DATE: 20121106
